FAERS Safety Report 25431100 (Version 1)
Quarter: 2025Q2

REPORT INFORMATION
  Report Type: Spontaneous
  Country: DE (occurrence: DE)
  Receive Date: 20250612
  Receipt Date: 20250612
  Transmission Date: 20250716
  Serious: Yes (Disabling)
  Sender: ABBVIE
  Company Number: None

PATIENT
  Age: 67 Year
  Sex: Female
  Weight: 55 kg

DRUGS (1)
  1. BOTOX [Suspect]
     Active Substance: ONABOTULINUMTOXINA
     Indication: Salivary hypersecretion
     Route: 065
     Dates: start: 2024, end: 2024

REACTIONS (2)
  - Tooth disorder [Recovered/Resolved with Sequelae]
  - Dry mouth [Unknown]

NARRATIVE: CASE EVENT DATE: 20250116
